FAERS Safety Report 8254830-9 (Version None)
Quarter: 2012Q2

REPORT INFORMATION
  Report Type: 
  Country: None (occurrence: None)
  Receive Date: 20120403
  Receipt Date: 20120329
  Transmission Date: 20120825
  Serious: Yes (Life-Threatening, Hospitalization, Other)
  Sender: FDA-Public Use
  Company Number: PHHY2012BR027544

PATIENT
  Sex: Female
  Weight: 55 kg

DRUGS (2)
  1. FORMOTEROL FUMARATE [Suspect]
     Indication: EMPHYSEMA
     Dosage: 2 DF, 1 OR 2 INHALATIONS PER DAY
  2. PREDNISONE TAB [Concomitant]
     Indication: MUSCULOSKELETAL PAIN
     Dosage: 1 DF, 1 TABLET  20R 3 TIMES A WEEK
     Route: 048

REACTIONS (5)
  - FEMUR FRACTURE [None]
  - HYPERGLYCAEMIA [None]
  - FALL [None]
  - WEIGHT DECREASED [None]
  - DIABETES MELLITUS [None]
